FAERS Safety Report 11876877 (Version 1)
Quarter: 2015Q4

REPORT INFORMATION
  Report Type: Spontaneous
  Country: HR (occurrence: HR)
  Receive Date: 20151229
  Receipt Date: 20151229
  Transmission Date: 20160305
  Serious: Yes (Hospitalization)
  Sender: FDA-Public Use
  Company Number: HR-TEVA-621048ISR

PATIENT
  Age: 65 Year
  Sex: Male
  Weight: 100 kg

DRUGS (4)
  1. OXALIPLATIN PLIVA [Suspect]
     Active Substance: OXALIPLATIN
     Indication: COLON CANCER
     Route: 041
     Dates: start: 20151117, end: 20151117
  2. FLUOROURACIL PLIVA 500 MG/10 ML [Suspect]
     Active Substance: FLUOROURACIL
     Indication: COLON CANCER
     Route: 041
     Dates: start: 20151117, end: 20151117
  3. LEUCOVORIN. [Suspect]
     Active Substance: LEUCOVORIN
     Indication: COLON CANCER
     Route: 041
     Dates: start: 20151117, end: 20151117
  4. FLUOROURACIL PLIVA 500 MG/10 ML [Suspect]
     Active Substance: FLUOROURACIL
     Indication: COLON CANCER
     Route: 040
     Dates: start: 20151117, end: 20151117

REACTIONS (2)
  - Electrocardiogram change [Recovered/Resolved]
  - Chills [Recovered/Resolved]

NARRATIVE: CASE EVENT DATE: 20151117
